FAERS Safety Report 9154051 (Version 1)
Quarter: 2013Q1

REPORT INFORMATION
  Report Type: Spontaneous
  Country: GB (occurrence: None)
  Receive Date: 20130205
  Receipt Date: 20130205
  Transmission Date: 20140127
  Serious: Yes (Other)
  Sender: FDA-Public Use
  Company Number: GB-DEXPHARM-20130025

PATIENT
  Age: 63 Year
  Sex: Female
  Weight: 62.13 kg

DRUGS (3)
  1. OMEPRAZOLE [Suspect]
     Indication: GASTRIC ULCER
     Route: 048
     Dates: start: 20110601, end: 20110615
  2. BENDROFLUAZIDE [Concomitant]
  3. LISINOPRIL [Concomitant]

REACTIONS (1)
  - Ageusia [None]
